FAERS Safety Report 19711639 (Version 2)
Quarter: 2021Q4

REPORT INFORMATION
  Report Type: Report from Study
  Country: US (occurrence: US)
  Receive Date: 20210816
  Receipt Date: 20211116
  Transmission Date: 20220303
  Serious: No
  Sender: FDA-Public Use
  Company Number: US-TG THERAPEUTICS INC.-TGT001989

PATIENT
  Age: 75 Year
  Sex: Female

DRUGS (3)
  1. UMBRALISIB [Suspect]
     Active Substance: UMBRALISIB
     Indication: Non-Hodgkin^s lymphoma
     Dosage: 800 MILLIGRAM, QD
     Route: 048
  2. UMBRALISIB [Suspect]
     Active Substance: UMBRALISIB
     Indication: Marginal zone lymphoma
  3. UMBRALISIB [Suspect]
     Active Substance: UMBRALISIB
     Indication: Follicular lymphoma

REACTIONS (6)
  - Flatulence [Unknown]
  - Tremor [Unknown]
  - Frequent bowel movements [Unknown]
  - Constipation [Unknown]
  - Nausea [Unknown]
  - Fatigue [Unknown]

NARRATIVE: CASE EVENT DATE: 20210501
